FAERS Safety Report 8056353-9 (Version None)
Quarter: 2012Q1

REPORT INFORMATION
  Report Type: 
  Country: None (occurrence: None)
  Receive Date: 20120119
  Receipt Date: 20120109
  Transmission Date: 20120608
  Serious: Yes (Hospitalization, Other)
  Sender: FDA-Public Use
  Company Number: US-ELI_LILLY_AND_COMPANY-US201104000831

PATIENT
  Sex: Female
  Weight: 62.132 kg

DRUGS (8)
  1. CYMBALTA [Suspect]
     Indication: DEPRESSION
     Dosage: 30 MG, QD
     Dates: start: 20110913
  2. CYMBALTA [Suspect]
     Dosage: 30 MG, QD
  3. FORTEO [Suspect]
     Indication: OSTEOPOROSIS
     Dosage: 20 UG, QD
     Route: 058
     Dates: start: 20110324
  4. CYMBALTA [Suspect]
     Dosage: 60 MG, QD
  5. WELLBUTRIN [Concomitant]
     Indication: DEPRESSION
  6. FORTEO [Suspect]
     Dosage: 20 UG, QD
     Route: 058
  7. FORTEO [Suspect]
     Dosage: 20 UG, QD
     Route: 058
  8. FORTEO [Suspect]
     Dosage: 20 UG, QD
     Route: 058
     Dates: end: 20110610

REACTIONS (21)
  - FATIGUE [None]
  - INTENTIONAL DRUG MISUSE [None]
  - DIZZINESS [None]
  - ARTHRALGIA [None]
  - CRYING [None]
  - DEPRESSION [None]
  - NAUSEA [None]
  - SLEEP APNOEA SYNDROME [None]
  - MOBILITY DECREASED [None]
  - SOMNOLENCE [None]
  - DRUG INEFFECTIVE [None]
  - BACK PAIN [None]
  - PRESYNCOPE [None]
  - BONE PAIN [None]
  - VISION BLURRED [None]
  - INJECTION SITE SCAB [None]
  - INJECTION SITE HAEMATOMA [None]
  - VISUAL IMPAIRMENT [None]
  - MUSCLE SPASMS [None]
  - INTERVERTEBRAL DISC DEGENERATION [None]
  - FOOD AVERSION [None]
